FAERS Safety Report 6905791-3 (Version None)
Quarter: 2010Q3

REPORT INFORMATION
  Report Type: 
  Country: None (occurrence: None)
  Receive Date: 20100804
  Receipt Date: 20100728
  Transmission Date: 20110219
  Serious: Yes (Hospitalization)
  Sender: FDA-Public Use
  Company Number: JP-ROCHE-627780

PATIENT
  Sex: Male
  Weight: 52 kg

DRUGS (7)
  1. AVASTIN [Suspect]
     Indication: COLON CANCER METASTATIC
     Route: 041
     Dates: start: 20081002, end: 20090317
  2. ELPLAT [Suspect]
     Indication: COLON CANCER METASTATIC
     Route: 041
     Dates: start: 20081002, end: 20090317
  3. LEUCOVORIN CALCIUM [Suspect]
     Indication: COLON CANCER METASTATIC
     Route: 041
     Dates: start: 20081002, end: 20090317
  4. FLUOROURACIL [Suspect]
     Indication: COLON CANCER METASTATIC
     Dosage: ROUTE: INTRAVENOUS BOLUS.
     Route: 040
     Dates: start: 20081002, end: 20090317
  5. FLUOROURACIL [Suspect]
     Dosage: ROUTE: INTRAVENOUS DRIP.
     Route: 040
     Dates: start: 20081002, end: 20090301
  6. KYTRIL [Concomitant]
     Route: 041
     Dates: start: 20081002, end: 20090317
  7. DEXART [Concomitant]
     Route: 041
     Dates: start: 20081002, end: 20090317

REACTIONS (1)
  - INTERSTITIAL LUNG DISEASE [None]
